FAERS Safety Report 22364121 (Version 1)
Quarter: 2023Q2

REPORT INFORMATION
  Report Type: Spontaneous
  Country: CN (occurrence: CN)
  Receive Date: 20230525
  Receipt Date: 20230525
  Transmission Date: 20230722
  Serious: Yes (Other)
  Sender: FDA-Public Use
  Company Number: None

PATIENT
  Age: 16 Year
  Sex: Female
  Weight: 42 kg

DRUGS (4)
  1. ANTI-THYMOCYTE GLOBULIN (RABBIT) NOS [Suspect]
     Active Substance: LAPINE T-LYMPHOCYTE IMMUNE GLOBULIN
     Indication: Myelosuppression
     Dosage: 150 MG, QD
     Route: 041
     Dates: start: 20230511, end: 20230513
  2. MEROPENEM [Concomitant]
     Active Substance: MEROPENEM
     Indication: Myelosuppression
     Dosage: 1.5 G, QD
     Route: 041
     Dates: start: 20230511, end: 20230512
  3. CYCLOPHOSPHAMIDE [Concomitant]
     Active Substance: CYCLOPHOSPHAMIDE
     Indication: Premedication
     Dosage: UNK
  4. SODIUM CHLORIDE [Concomitant]
     Active Substance: SODIUM CHLORIDE
     Indication: Blood volume expansion
     Dosage: UNK

REACTIONS (6)
  - Agranulocytosis [Recovering/Resolving]
  - Pruritus [Recovering/Resolving]
  - Pyrexia [Recovered/Resolved]
  - Temperature intolerance [Recovering/Resolving]
  - Rash erythematous [Recovering/Resolving]
  - Infection [Recovering/Resolving]

NARRATIVE: CASE EVENT DATE: 20230511
